FAERS Safety Report 8681133 (Version 2)
Quarter: 2012Q4

REPORT INFORMATION
  Report Type: 
  Country: AU (occurrence: AU)
  Receive Date: 20120725
  Receipt Date: 20121028
  Transmission Date: 20130627
  Serious: Yes (Hospitalization)
  Sender: FDA-Public Use
  Company Number: AU-009507513-1207AUS005510

PATIENT
  Age: 56 Year
  Sex: Male

DRUGS (3)
  1. PEGATRON [Suspect]
     Indication: HEPATITIS C
     Dosage: UNK
     Dates: start: 20120430
  2. VICTRELIS 200 MG [Suspect]
     Indication: HEPATITIS C
     Dosage: UNK
     Dates: start: 2012
  3. MIRTAZAPINE DP [Concomitant]
     Indication: DEPRESSION

REACTIONS (7)
  - Dehydration [Unknown]
  - Hypotension [Unknown]
  - Malaise [Unknown]
  - Epistaxis [Recovering/Resolving]
  - Rectal haemorrhage [Recovering/Resolving]
  - Gingival bleeding [Recovering/Resolving]
  - Platelet count decreased [Unknown]
